FAERS Safety Report 12684340 (Version 1)
Quarter: 2016Q3

REPORT INFORMATION
  Report Type: Spontaneous
  Country: SE (occurrence: SE)
  Receive Date: 20160825
  Receipt Date: 20160825
  Transmission Date: 20161109
  Serious: Yes (Other)
  Sender: FDA-Public Use
  Company Number: SE-TEVA-2016-10761

PATIENT
  Sex: Male

DRUGS (1)
  1. MIRTAZAPIN ACTAVIS [Suspect]
     Active Substance: MIRTAZAPINE
     Indication: FATIGUE
     Route: 065

REACTIONS (3)
  - Serotonin syndrome [Unknown]
  - Confusional state [Unknown]
  - Aggression [Unknown]
